FAERS Safety Report 7878380-4 (Version None)
Quarter: 2011Q4

REPORT INFORMATION
  Report Type: 
  Country: None (occurrence: None)
  Receive Date: 20111028
  Receipt Date: 20111017
  Transmission Date: 20120403
  Serious: Yes (Life-Threatening, Hospitalization, Other)
  Sender: FDA-Public Use
  Company Number: GB-ACCORD-010641

PATIENT
  Age: 1 Year
  Sex: Male
  Weight: 13 kg

DRUGS (7)
  1. PREDNISOLONE [Concomitant]
  2. FLUCONAZOLE [Suspect]
     Indication: FUNGAL PERITONITIS
     Dosage: 3.00-MG/KG/ORAL
     Route: 048
  3. CASPOFUNGIN ACETATE [Concomitant]
  4. TACROLIMUS [Suspect]
     Indication: IMMUNOSUPPRESSION
     Dosage: 12.50-MG
  5. AZATHIOPRINE [Suspect]
     Indication: RENAL TRANSPLANT
  6. METHYLPREDNISOLONE [Suspect]
     Indication: RENAL TRANSPLANT
  7. FLUCONAZOLE [Suspect]
     Indication: FUNGAL PERITONITIS
     Dosage: 3.00-MG/KG/ INTRAVENOUS(NOT OTHERWISE SPECIFIED)

REACTIONS (12)
  - COMPLICATIONS OF TRANSPLANTED KIDNEY [None]
  - DRUG INTERACTION [None]
  - TOXICITY TO VARIOUS AGENTS [None]
  - URETERIC OBSTRUCTION [None]
  - LOSS OF CONSCIOUSNESS [None]
  - BLOOD CREATININE INCREASED [None]
  - POST PROCEDURAL INFECTION [None]
  - ASCITES [None]
  - PERITONEAL CANDIDIASIS [None]
  - STRABISMUS [None]
  - SEPTIC SHOCK [None]
  - CANDIDA SEPSIS [None]
